FAERS Safety Report 8934181 (Version 1)
Quarter: 2012Q4

REPORT INFORMATION
  Report Type: 
  Country: US (occurrence: US)
  Receive Date: 20121129
  Receipt Date: 20121129
  Transmission Date: 20130627
  Serious: No
  Sender: FDA-Public Use
  Company Number: US-GLAXOSMITHKLINE-A0990427A

PATIENT
  Age: 51 Year
  Sex: Female

DRUGS (4)
  1. BUPROPION HYDROCHLORIDE [Suspect]
     Indication: EX-TOBACCO USER
     Dosage: 150MG Per day
     Route: 048
     Dates: start: 200208
  2. SYNTHROID [Concomitant]
  3. LANSOPRAZOLE [Concomitant]
  4. BUDESONIDE [Concomitant]
     Route: 055

REACTIONS (2)
  - Drug ineffective [Unknown]
  - Tobacco user [Unknown]
